FAERS Safety Report 19756871 (Version 2)
Quarter: 2022Q2

REPORT INFORMATION
  Report Type: Spontaneous
  Country: LU (occurrence: LU)
  Receive Date: 20210827
  Receipt Date: 20220505
  Transmission Date: 20220721
  Serious: Yes (Life-Threatening, Hospitalization)
  Sender: FDA-Public Use
  Company Number: None

PATIENT
  Age: 62 Year
  Sex: Male
  Weight: 54 kg

DRUGS (6)
  1. PACLITAXEL [Suspect]
     Active Substance: PACLITAXEL
     Indication: Lung neoplasm malignant
     Dosage: 2ND COURSE OF CHEMOTHERAPY: 30-JUL-2021: 10.30-10.40
     Route: 042
     Dates: start: 20210730, end: 20210730
  2. AKYNZEO (NETUPITANT\PALONOSETRON) [Concomitant]
     Active Substance: NETUPITANT\PALONOSETRON
     Indication: Prophylaxis of nausea and vomiting
     Dosage: 300 MG / 0.5 MG; 30-JUL-2021 : 09.00-09.01
     Route: 048
     Dates: start: 20210730, end: 20210730
  3. DEXAMETHASONE [Concomitant]
     Active Substance: DEXAMETHASONE
     Indication: Prophylaxis of nausea and vomiting
     Dosage: 30-JUL-2021 : 09.30-10.00
     Route: 042
     Dates: start: 20210730, end: 20210730
  4. KEYTRUDA [Concomitant]
     Active Substance: PEMBROLIZUMAB
     Indication: Lung neoplasm malignant
     Dosage: 30-JUL-2021 : 10.00-10.30
     Route: 042
     Dates: start: 20210730, end: 20210730
  5. POLARAMINE [Concomitant]
     Active Substance: DEXCHLORPHENIRAMINE MALEATE
     Indication: Premedication
     Dosage: 30-JUL-2021 : 09.29-09.30
     Route: 042
     Dates: start: 20210730, end: 20210730
  6. CIMETIDINE [Concomitant]
     Active Substance: CIMETIDINE
     Indication: Premedication
     Dosage: 30-JUL-2021 : 09.00-09.01
     Route: 048
     Dates: start: 20210730, end: 20210730

REACTIONS (1)
  - Respiratory distress [Recovering/Resolving]

NARRATIVE: CASE EVENT DATE: 20210730
